FAERS Safety Report 14654805 (Version 1)
Quarter: 2018Q1

REPORT INFORMATION
  Report Type: Spontaneous
  Country: US (occurrence: US)
  Receive Date: 20180319
  Receipt Date: 20180319
  Transmission Date: 20180509
  Serious: Yes (Hospitalization, Other)
  Sender: FDA-Public Use
  Company Number: US-ELI_LILLY_AND_COMPANY-US201803002272

PATIENT
  Age: 78 Year
  Sex: Female

DRUGS (5)
  1. HUMALOG [Suspect]
     Active Substance: INSULIN LISPRO
     Indication: BLOOD GLUCOSE ABNORMAL
     Dosage: UNK, UNKNOWN
     Route: 065
     Dates: start: 2000
  2. HUMALOG [Suspect]
     Active Substance: INSULIN LISPRO
     Dosage: UNK, BEFORE BREAKFAST, LUNCH AND DINNER
     Route: 058
  3. BASAGLAR [Suspect]
     Active Substance: INSULIN GLARGINE
     Indication: PRODUCT USED FOR UNKNOWN INDICATION
     Dosage: 18 IU, DAILY (AT NIGHT)
     Route: 058
     Dates: start: 201801
  4. HUMALOG [Suspect]
     Active Substance: INSULIN LISPRO
     Indication: BLOOD GLUCOSE ABNORMAL
     Dosage: UNK, BEFORE BREAKFAST, LUNCH AND DINNER/SLIDING SCALE
     Route: 058
  5. BASAGLAR [Suspect]
     Active Substance: INSULIN GLARGINE
     Dosage: 18 IU, DAILY (AT NIGHT)
     Route: 058

REACTIONS (9)
  - Blood glucose increased [Unknown]
  - Chronic kidney disease [Unknown]
  - Pain in extremity [Unknown]
  - Blood glucose decreased [Unknown]
  - Drug ineffective [Unknown]
  - Injury [Unknown]
  - Somnolence [Unknown]
  - Herpes zoster [Unknown]
  - Visual impairment [Not Recovered/Not Resolved]

NARRATIVE: CASE EVENT DATE: 201802
